FAERS Safety Report 10661527 (Version 5)
Quarter: 2016Q1

REPORT INFORMATION
  Report Type: Report from Study
  Country: DE (occurrence: DE)
  Receive Date: 20141218
  Receipt Date: 20160216
  Transmission Date: 20160525
  Serious: Yes (Hospitalization, Other)
  Sender: FDA-Public Use
  Company Number: PHHY2014DE159980

PATIENT
  Age: 46 Year
  Sex: Female
  Weight: 65 kg

DRUGS (1)
  1. GILENYA [Suspect]
     Active Substance: FINGOLIMOD HYDROCHLORIDE
     Indication: MULTIPLE SCLEROSIS
     Dosage: 0.5 MG, QD
     Route: 048
     Dates: start: 20130424, end: 20141121

REACTIONS (5)
  - Carcinoembryonic antigen increased [Unknown]
  - Metastases to lung [Not Recovered/Not Resolved]
  - Metastases to liver [Not Recovered/Not Resolved]
  - Adenocarcinoma of colon [Unknown]
  - Colon cancer metastatic [Not Recovered/Not Resolved]

NARRATIVE: CASE EVENT DATE: 201411
